FAERS Safety Report 4818821-X (Version None)
Quarter: 2005Q4

REPORT INFORMATION
  Report Type: 
  Country: None (occurrence: None)
  Receive Date: 20051101
  Receipt Date: 20051011
  Transmission Date: 20060501
  Serious: No
  Sender: FDA-Public Use
  Company Number: TPA2005A01237

PATIENT
  Age: 58 Year
  Sex: Female
  Weight: 90.7194 kg

DRUGS (7)
  1. ACTOS [Suspect]
     Indication: DIABETES MELLITUS NON-INSULIN-DEPENDENT
     Dosage: 15 MG, 1 IN 1 D, PER ORAL; SEE IMAGE
     Route: 048
     Dates: start: 20050923, end: 20051010
  2. ACTOS [Suspect]
     Indication: DIABETES MELLITUS NON-INSULIN-DEPENDENT
     Dosage: 15 MG, 1 IN 1 D, PER ORAL; SEE IMAGE
     Route: 048
     Dates: start: 20051010
  3. LEXAPRO [Concomitant]
  4. TENORMIN [Concomitant]
  5. LIPITOR [Concomitant]
  6. HYDRALAZINE HCL [Concomitant]
  7. NORTRIPTYLINE HCL [Concomitant]

REACTIONS (2)
  - BLOOD GLUCOSE INCREASED [None]
  - THERAPY NON-RESPONDER [None]
